FAERS Safety Report 4415142-4 (Version None)
Quarter: 2004Q3

REPORT INFORMATION
  Report Type: 
  Country: None (occurrence: None)
  Receive Date: 20040729
  Receipt Date: 20040602
  Transmission Date: 20050211
  Serious: Yes (Hospitalization)
  Sender: FDA-Public Use
  Company Number: 2004-00017

PATIENT
  Age: 61 Year
  Sex: Male
  Weight: 90.7 kg

DRUGS (1)
  1. VELCADE [Suspect]
     Indication: MULTIPLE MYELOMA
     Dosage: 2.5 MG MG, BIW, IV BOLUS
     Route: 040
     Dates: start: 20040323, end: 20040528

REACTIONS (2)
  - ANGINA PECTORIS [None]
  - STAPHYLOCOCCAL SEPSIS [None]
